FAERS Safety Report 8063265-3 (Version None)
Quarter: 2012Q1

REPORT INFORMATION
  Report Type: 
  Country: None (occurrence: None)
  Receive Date: 20120123
  Receipt Date: 20120117
  Transmission Date: 20120608
  Serious: Yes (Hospitalization)
  Sender: FDA-Public Use
  Company Number: PHEH2011US012246

PATIENT
  Age: 85 Year
  Sex: Female
  Weight: 49.887 kg

DRUGS (2)
  1. FOSAMAX [Concomitant]
     Dosage: UNK UKN, UNK
  2. RECLAST [Suspect]
     Dosage: UNK UKN, UNK
     Route: 042
     Dates: start: 20111001

REACTIONS (10)
  - HAEMOLYTIC ANAEMIA [None]
  - MITRAL VALVE INCOMPETENCE [None]
  - ANAEMIA [None]
  - HAEMOGLOBIN DECREASED [None]
  - CARDIAC MURMUR [None]
  - HEART RATE IRREGULAR [None]
  - RENAL ATROPHY [None]
  - HAEMOLYSIS [None]
  - BACK PAIN [None]
  - DYSPNOEA [None]
